FAERS Safety Report 8200306-4 (Version None)
Quarter: 2012Q1

REPORT INFORMATION
  Report Type: 
  Country: None (occurrence: None)
  Receive Date: 20120312
  Receipt Date: 20120302
  Transmission Date: 20120608
  Serious: Yes (Death, Life-Threatening, Other)
  Sender: FDA-Public Use
  Company Number: JP-CELGENEUS-087-50794-12030884

PATIENT
  Sex: Male
  Weight: 56 kg

DRUGS (1)
  1. VIDAZA [Suspect]
     Dosage: 75 MILLIGRAM/SQ. METER
     Route: 058
     Dates: start: 20110929, end: 20111005

REACTIONS (3)
  - PNEUMONIA [None]
  - PLATELET COUNT DECREASED [None]
  - ANAEMIA [None]
